FAERS Safety Report 7978413-0 (Version None)
Quarter: 2011Q4

REPORT INFORMATION
  Report Type: 
  Country: None (occurrence: None)
  Receive Date: 20111214
  Receipt Date: 20111206
  Transmission Date: 20120403
  Serious: Yes (Life-Threatening, Hospitalization)
  Sender: FDA-Public Use
  Company Number: CH-UCBSA-047325

PATIENT
  Age: 70 Year
  Sex: Male

DRUGS (25)
  1. KEPPRA [Suspect]
     Dosage: REDUCED DOSE
     Route: 048
  2. MORPHINE [Suspect]
     Dosage: CUMULATIVE DOSE : 5.5 MG
     Route: 048
     Dates: start: 20111019, end: 20111021
  3. RESYL PLUS [Suspect]
     Indication: COUGH
     Dosage: 30 GTT DROPS, CUMULATIVE DOSE: 355 GTT
     Route: 048
     Dates: start: 20111019, end: 20111108
  4. VFEND [Suspect]
     Indication: PNEUMONIA
     Route: 048
     Dates: start: 20111025, end: 20111108
  5. CERTICAN [Concomitant]
     Route: 048
  6. NORVASC [Concomitant]
     Route: 048
  7. IPRATROPIUM BROMIDE [Concomitant]
     Route: 055
  8. CARVEDILOL [Concomitant]
     Route: 048
  9. TORSEMIDE [Concomitant]
     Route: 048
  10. CALCIMAGON D3 [Concomitant]
     Route: 048
  11. PLAVIX [Concomitant]
     Route: 048
  12. SYMBICORT [Concomitant]
     Route: 055
  13. LAMICTAL [Concomitant]
     Route: 048
  14. PANTOPRAZOLE SODIUM [Concomitant]
     Route: 048
  15. KEPPRA [Suspect]
     Indication: EPILEPSY
     Route: 048
  16. MORPHINE [Suspect]
     Indication: COUGH
     Dosage: CUMULATIVE DOSE 27 MG
     Route: 042
     Dates: start: 20111021, end: 20111108
  17. TAZOBACTAM [Concomitant]
     Route: 040
     Dates: start: 20111014, end: 20111023
  18. MYFORTIC [Concomitant]
     Route: 048
  19. ACETYLCYSTEINE [Concomitant]
     Route: 048
  20. SPIRIVA [Concomitant]
     Route: 055
  21. FRAGMIN [Concomitant]
     Route: 058
  22. COVERSUM N [Suspect]
     Indication: HEART TRANSPLANT
     Route: 048
  23. OXAZEPAM [Concomitant]
     Route: 048
  24. HYDROCODONE [Suspect]
     Indication: COUGH
     Route: 048
     Dates: start: 20111020, end: 20111108
  25. TAMSULOSIN HCL [Concomitant]
     Route: 048

REACTIONS (8)
  - RESPIRATORY ACIDOSIS [None]
  - SOMNOLENCE [None]
  - DRUG LEVEL INCREASED [None]
  - PNEUMONIA [None]
  - MEDICATION ERROR [None]
  - RESPIRATORY RATE DECREASED [None]
  - RENAL FAILURE CHRONIC [None]
  - TOXICITY TO VARIOUS AGENTS [None]
